FAERS Safety Report 25034059 (Version 3)
Quarter: 2025Q2

REPORT INFORMATION
  Report Type: Spontaneous
  Country: JP (occurrence: JP)
  Receive Date: 20250304
  Receipt Date: 20250404
  Transmission Date: 20250716
  Serious: Yes (Death)
  Sender: REGENERON
  Company Number: JP-BAYER-2025A029173

PATIENT
  Age: 56 Year
  Sex: Male

DRUGS (2)
  1. EYLEA [Suspect]
     Active Substance: AFLIBERCEPT
     Indication: Diabetic retinopathy
     Dosage: 2 MG, Q3MON ,RIGHT EYE (PATIENT TREATED ON BOTH EYES), SOLUTION FOR INJECTION IN PRE-FILLED SYRIGE 4
     Route: 031
     Dates: start: 202006, end: 20240911
  2. EYLEA [Suspect]
     Active Substance: AFLIBERCEPT
     Indication: Macular oedema
     Dosage: 2 MG, Q3MON ,LEFT EYE, SOLUTION FOR INJECTION IN PRE-FILLED SYRIGE 40MG/ML
     Route: 031
     Dates: start: 202006, end: 20240913

REACTIONS (1)
  - Death [Fatal]

NARRATIVE: CASE EVENT DATE: 20241101
